FAERS Safety Report 19899589 (Version 2)
Quarter: 2021Q4

REPORT INFORMATION
  Report Type: Spontaneous
  Country: TH (occurrence: TH)
  Receive Date: 20210930
  Receipt Date: 20211108
  Transmission Date: 20220303
  Serious: Yes (Hospitalization, Other)
  Sender: FDA-Public Use
  Company Number: TH-AMGEN-THASP2021147770

PATIENT
  Sex: Female

DRUGS (2)
  1. ADALIMUMAB [Suspect]
     Active Substance: ADALIMUMAB
     Indication: Polyarteritis nodosa
     Dosage: 20 MILLIGRAM, Q2WK
     Route: 058
     Dates: start: 20210318
  2. ADALIMUMAB [Suspect]
     Active Substance: ADALIMUMAB
     Indication: Combined immunodeficiency

REACTIONS (3)
  - Pericarditis tuberculous [Recovering/Resolving]
  - Pulmonary tuberculosis [Recovering/Resolving]
  - Off label use [Unknown]

NARRATIVE: CASE EVENT DATE: 20210318
